FAERS Safety Report 23384694 (Version 2)
Quarter: 2024Q1

REPORT INFORMATION
  Report Type: Spontaneous
  Country: US (occurrence: US)
  Receive Date: 20240109
  Receipt Date: 20240220
  Transmission Date: 20240410
  Serious: No
  Sender: FDA-Public Use
  Company Number: US-PFIZER INC-202400002697

PATIENT
  Age: 78 Year
  Sex: Male
  Weight: 101.6 kg

DRUGS (13)
  1. PAXLOVID [Suspect]
     Active Substance: NIRMATRELVIR\RITONAVIR
     Indication: COVID-19 treatment
     Dosage: [NIRMATRELVIR 300 MG]/[RITONAVIR 100 MG]; 2X/DAY
     Dates: start: 20231224, end: 20231229
  2. LEVEMIR [Concomitant]
     Active Substance: INSULIN DETEMIR
     Dosage: MANY YEARS AGO
  3. NOVOLOG [Concomitant]
     Active Substance: INSULIN ASPART
     Dosage: MANY YEARS AGO
  4. LOSARTAN [Concomitant]
     Active Substance: LOSARTAN
     Dosage: LATE SUMMER
     Dates: start: 2023
  5. ATORVASTATIN [Concomitant]
     Active Substance: ATORVASTATIN
     Dosage: UNK
     Dates: start: 2022
  6. OMEPRAZOLE [Concomitant]
     Active Substance: OMEPRAZOLE
     Dosage: UNK
     Dates: start: 2022
  7. METOPROLOL [Concomitant]
     Active Substance: METOPROLOL
     Dosage: UNK
     Dates: start: 2023
  8. GABAPENTIN [Concomitant]
     Active Substance: GABAPENTIN
     Dosage: MANY YEARS AGO
  9. CLOPIDOGREL [Concomitant]
     Active Substance: CLOPIDOGREL BISULFATE
     Dosage: UNK
     Dates: start: 2023
  10. VITAMIN D3 [Concomitant]
     Active Substance: CHOLECALCIFEROL
  11. CALCIUM [Concomitant]
     Active Substance: CALCIUM
  12. IRON [Concomitant]
     Active Substance: IRON
  13. FLAXSEED [Concomitant]
     Active Substance: FLAX SEED

REACTIONS (2)
  - COVID-19 [Recovered/Resolved]
  - Disease recurrence [Recovered/Resolved]

NARRATIVE: CASE EVENT DATE: 20240103
